FAERS Safety Report 5322319-2 (Version None)
Quarter: 2007Q2

REPORT INFORMATION
  Report Type: 
  Country: None (occurrence: None)
  Receive Date: 20070511
  Receipt Date: 20070503
  Transmission Date: 20071010
  Serious: Yes (Hospitalization)
  Sender: FDA-Public Use
  Company Number: US-ELI_LILLY_AND_COMPANY-US200705000967

PATIENT
  Age: 51 Year
  Sex: Male

DRUGS (3)
  1. HUMALOG [Suspect]
     Dosage: UNK, OTHER
     Route: 058
     Dates: start: 20051101
  2. HUMULIN N [Suspect]
     Dosage: UNK, UNKNOWN
     Dates: start: 19990101, end: 20051101
  3. HUMULIN R [Suspect]
     Dosage: UNK, UNKNOWN
     Dates: start: 19990101, end: 20051101

REACTIONS (6)
  - BLOOD GLUCOSE INCREASED [None]
  - BLOOD PRESSURE DECREASED [None]
  - CARDIAC DISORDER [None]
  - DRUG INEFFECTIVE [None]
  - SLUGGISHNESS [None]
  - WEIGHT INCREASED [None]
